FAERS Safety Report 18272151 (Version 2)
Quarter: 2020Q4

REPORT INFORMATION
  Report Type: Spontaneous
  Country: PT (occurrence: PT)
  Receive Date: 20200916
  Receipt Date: 20201102
  Transmission Date: 20210113
  Serious: Yes (Disabling)
  Sender: FDA-Public Use
  Company Number: PT-TEVA-2020-PT-1826738

PATIENT
  Age: 84 Year
  Sex: Female

DRUGS (4)
  1. ANASTROZOL TEVA [Suspect]
     Active Substance: ANASTROZOLE
     Dosage: 1 MILLIGRAM DAILY; 1CP PER DAY
     Route: 048
     Dates: start: 202007
  2. LERCANIDIPINE [Concomitant]
     Active Substance: LERCANIDIPINE
  3. ROSUVASTATIN. [Concomitant]
     Active Substance: ROSUVASTATIN
  4. INSULIN GLARGINE [Concomitant]
     Active Substance: INSULIN GLARGINE

REACTIONS (3)
  - Asthenia [Unknown]
  - Hyperglycaemia [Unknown]
  - Fatigue [Unknown]

NARRATIVE: CASE EVENT DATE: 20200725
